FAERS Safety Report 21857570 (Version 1)
Quarter: 2023Q1

REPORT INFORMATION
  Report Type: Spontaneous
  Country: US (occurrence: US)
  Receive Date: 20230113
  Receipt Date: 20230113
  Transmission Date: 20230418
  Serious: Yes (Death, Hospitalization)
  Sender: FDA-Public Use
  Company Number: US-BAYER-2023A002551

PATIENT
  Age: 64 Year
  Sex: Male

DRUGS (13)
  1. RIVAROXABAN [Suspect]
     Active Substance: RIVAROXABAN
     Indication: Product used for unknown indication
     Route: 048
  2. ACETAMINOPHEN [Suspect]
     Active Substance: ACETAMINOPHEN
     Indication: Product used for unknown indication
     Route: 065
  3. THIAMINE [Suspect]
     Active Substance: THIAMINE
     Indication: Product used for unknown indication
     Route: 065
  4. ONDANSETRON [Suspect]
     Active Substance: ONDANSETRON
  5. METOPROLOL [Suspect]
     Active Substance: METOPROLOL
  6. PANTOPRAZOLE [Suspect]
     Active Substance: PANTOPRAZOLE
  7. MECLIZINE [Suspect]
     Active Substance: MECLIZINE HYDROCHLORIDE
  8. GABAPENTIN [Suspect]
     Active Substance: GABAPENTIN
  9. FUROSEMIDE [Suspect]
     Active Substance: FUROSEMIDE
  10. ALBUTEROL [Suspect]
     Active Substance: ALBUTEROL
  11. ATORVASTATIN [Suspect]
     Active Substance: ATORVASTATIN
  12. POTASSIUM [Suspect]
     Active Substance: POTASSIUM
  13. ASPIRIN [Suspect]
     Active Substance: ASPIRIN
     Indication: Product used for unknown indication
     Route: 065

REACTIONS (2)
  - Product use issue [Fatal]
  - Toxicity to various agents [Fatal]
